FAERS Safety Report 10153250 (Version 3)
Quarter: 2014Q3

REPORT INFORMATION
  Report Type: Report from Study
  Country: SE (occurrence: SE)
  Receive Date: 20140505
  Receipt Date: 20140805
  Transmission Date: 20150326
  Serious: Yes (Other)
  Sender: FDA-Public Use
  Company Number: SE-BRISTOL-MYERS SQUIBB COMPANY-20667572

PATIENT
  Age: 67 Year
  Sex: Female

DRUGS (3)
  1. METHOTREXATE [Concomitant]
     Active Substance: METHOTREXATE
  2. ORENCIA [Suspect]
     Active Substance: ABATACEPT
     Dates: start: 20140108, end: 20140217
  3. PREDNISOLONE. [Concomitant]
     Active Substance: PREDNISOLONE

REACTIONS (3)
  - Bladder cancer [Unknown]
  - Headache [Recovered/Resolved]
  - Facial neuralgia [Recovered/Resolved]

NARRATIVE: CASE EVENT DATE: 201401
